FAERS Safety Report 23780046 (Version 1)
Quarter: 2024Q2

REPORT INFORMATION
  Report Type: Other
  Country: TR (occurrence: TR)
  Receive Date: 20240424
  Receipt Date: 20240424
  Transmission Date: 20240715
  Serious: Yes (Life-Threatening)
  Sender: FDA-Public Use
  Company Number: TR-B.Braun Medical Inc.-2155961

PATIENT
  Age: 18 Year
  Sex: Female
  Weight: 50 kg

DRUGS (6)
  1. EPINEPHRINE\LIDOCAINE HYDROCHLORIDE [Suspect]
     Active Substance: EPINEPHRINE\LIDOCAINE HYDROCHLORIDE
     Indication: Infiltration anaesthesia
  2. FENTANYL [Concomitant]
     Active Substance: FENTANYL\FENTANYL CITRATE
  3. CEFAZOLIN [Concomitant]
     Active Substance: CEFAZOLIN
  4. End-tidal sevoflurane 1.0% [Concomitant]
  5. ROCURONIUM [Concomitant]
     Active Substance: ROCURONIUM BROMIDE
  6. PROPOFOL [Concomitant]
     Active Substance: PROPOFOL

REACTIONS (2)
  - Stress cardiomyopathy [Recovered/Resolved with Sequelae]
  - Circulatory collapse [Recovered/Resolved with Sequelae]
